FAERS Safety Report 11143878 (Version 5)
Quarter: 2015Q4

REPORT INFORMATION
  Report Type: Spontaneous
  Country: BR (occurrence: BR)
  Receive Date: 20150528
  Receipt Date: 20151119
  Transmission Date: 20160304
  Serious: Yes (Other)
  Sender: FDA-Public Use
  Company Number: BR-JNJFOC-20150517851

PATIENT
  Age: 22 Year
  Sex: Female
  Weight: 50 kg

DRUGS (7)
  1. REMICADE [Suspect]
     Active Substance: INFLIXIMAB
     Indication: CROHN^S DISEASE
     Route: 042
     Dates: start: 20150614
  2. OMEPRAZOLE. [Concomitant]
     Active Substance: OMEPRAZOLE
     Route: 065
  3. REMICADE [Suspect]
     Active Substance: INFLIXIMAB
     Indication: CROHN^S DISEASE
     Route: 042
     Dates: start: 20150806
  4. REMICADE [Suspect]
     Active Substance: INFLIXIMAB
     Indication: CROHN^S DISEASE
     Route: 042
     Dates: start: 201508
  5. REMICADE [Suspect]
     Active Substance: INFLIXIMAB
     Indication: CROHN^S DISEASE
     Route: 042
     Dates: start: 201503
  6. REMICADE [Suspect]
     Active Substance: INFLIXIMAB
     Indication: CROHN^S DISEASE
     Route: 042
     Dates: start: 201501
  7. MESALAZINE [Concomitant]
     Active Substance: MESALAMINE
     Route: 065

REACTIONS (14)
  - Abdominal pain upper [Unknown]
  - Weight decreased [Unknown]
  - Off label use [Unknown]
  - Anaemia [Unknown]
  - Crohn^s disease [Recovering/Resolving]
  - Drug effect incomplete [Not Recovered/Not Resolved]
  - Fatigue [Unknown]
  - Drug prescribing error [Unknown]
  - Therapeutic response unexpected [Unknown]
  - Diarrhoea [Unknown]
  - Inappropriate schedule of drug administration [Unknown]
  - Malaise [Unknown]
  - Emotional disorder [Not Recovered/Not Resolved]
  - Nausea [Unknown]

NARRATIVE: CASE EVENT DATE: 2015
